FAERS Safety Report 5469469-8 (Version None)
Quarter: 2007Q3

REPORT INFORMATION
  Report Type: 
  Country: None (occurrence: None)
  Receive Date: 20070925
  Receipt Date: 20070925
  Transmission Date: 20080115
  Serious: Yes (Other)
  Sender: FDA-Public Use
  Company Number: None

PATIENT
  Age: 41 Year
  Sex: Female
  Weight: 59.8748 kg

DRUGS (2)
  1. LEVAQUIN [Suspect]
     Indication: LYMPHADENOPATHY
     Dosage: 1 PER DAY PO
     Route: 048
     Dates: start: 20070903, end: 20070909
  2. LEVAQUIN [Suspect]
     Indication: SINUSITIS
     Dosage: 1 PER DAY PO
     Route: 048
     Dates: start: 20070903, end: 20070909

REACTIONS (9)
  - ARTHRALGIA [None]
  - ARTHRITIS [None]
  - DEPRESSION [None]
  - FEELING OF DESPAIR [None]
  - INSOMNIA [None]
  - IRRITABILITY [None]
  - MOVEMENT DISORDER [None]
  - SLUGGISHNESS [None]
  - SUICIDAL IDEATION [None]
